FAERS Safety Report 23544491 (Version 1)
Quarter: 2024Q1

REPORT INFORMATION
  Report Type: Other
  Country: US (occurrence: None)
  Receive Date: 20240220
  Receipt Date: 20240220
  Transmission Date: 20240410
  Serious: Yes (Other)
  Sender: FDA-Public Use
  Company Number: US-ROCHE-3510903

PATIENT

DRUGS (3)
  1. COBIMETINIB [Suspect]
     Active Substance: COBIMETINIB
     Indication: Adenocarcinoma pancreas
     Dosage: FOR 21 DAYS ON AND 7 DAYS OFF
     Route: 048
  2. NIVOLUMAB [Suspect]
     Active Substance: NIVOLUMAB
     Indication: Adenocarcinoma pancreas
     Route: 065
  3. IPILIMUMAB [Suspect]
     Active Substance: IPILIMUMAB
     Indication: Adenocarcinoma pancreas
     Route: 065

REACTIONS (15)
  - Diarrhoea [Unknown]
  - Pyrexia [Unknown]
  - Fatigue [Unknown]
  - Pruritus [Unknown]
  - Rash maculo-papular [Unknown]
  - Rash vesicular [Unknown]
  - Adrenal insufficiency [Unknown]
  - Nausea [Unknown]
  - Dermatitis acneiform [Unknown]
  - Rash [Unknown]
  - Aspartate aminotransferase increased [Unknown]
  - Alanine aminotransferase increased [Unknown]
  - Pneumonitis [Unknown]
  - Anaemia [Unknown]
  - Steatohepatitis [Unknown]
